FAERS Safety Report 20973377 (Version 2)
Quarter: 2022Q3

REPORT INFORMATION
  Report Type: Spontaneous
  Country: JP (occurrence: JP)
  Receive Date: 20220617
  Receipt Date: 20220808
  Transmission Date: 20221027
  Serious: Yes (Hospitalization, Other)
  Sender: FDA-Public Use
  Company Number: JP-ONO-2022JP008119

PATIENT
  Age: 79 Year
  Sex: Female
  Weight: 75 kg

DRUGS (16)
  1. OPDIVO [Suspect]
     Active Substance: NIVOLUMAB
     Indication: Malignant melanoma
     Dosage: 240 MG
     Route: 041
     Dates: start: 20211125, end: 20220125
  2. OPDIVO [Suspect]
     Active Substance: NIVOLUMAB
     Route: 065
     Dates: start: 20211214
  3. OPDIVO [Suspect]
     Active Substance: NIVOLUMAB
     Route: 065
     Dates: start: 20211228
  4. OPDIVO [Suspect]
     Active Substance: NIVOLUMAB
     Route: 065
     Dates: start: 20220111
  5. OPDIVO [Suspect]
     Active Substance: NIVOLUMAB
     Route: 065
     Dates: start: 20220125
  6. SULFAMETHOXAZOLE\TRIMETHOPRIM [Suspect]
     Active Substance: SULFAMETHOXAZOLE\TRIMETHOPRIM
     Indication: Interstitial lung disease
     Dosage: UNK
     Route: 048
     Dates: start: 20220308, end: 20220405
  7. TORSEMIDE [Concomitant]
     Active Substance: TORSEMIDE
     Indication: Product used for unknown indication
     Dosage: 8 MG, EVERYDAY
     Route: 048
  8. CARVEDILOL [Concomitant]
     Active Substance: CARVEDILOL
     Indication: Product used for unknown indication
     Dosage: 10 MG, EVERYDAY
     Route: 048
     Dates: end: 20220420
  9. CARVEDILOL [Concomitant]
     Active Substance: CARVEDILOL
     Indication: Product used for unknown indication
     Dosage: 5 MG, EVERYDAY
     Route: 048
     Dates: end: 20220420
  10. EDOXABAN TOSYLATE [Concomitant]
     Active Substance: EDOXABAN TOSYLATE
     Indication: Product used for unknown indication
     Dosage: 30 MG, EVERYDAY
     Route: 048
  11. AMIODARONE HYDROCHLORIDE [Concomitant]
     Active Substance: AMIODARONE HYDROCHLORIDE
     Indication: Product used for unknown indication
     Dosage: 50 MG, EVERYDAY
     Route: 048
     Dates: end: 20220420
  12. PREDONINE [Concomitant]
     Active Substance: PREDNISOLONE
     Indication: Cardiac sarcoidosis
     Dosage: 5 MG, EVERYDAY
     Route: 048
     Dates: end: 20220307
  13. PREDONINE [Concomitant]
     Active Substance: PREDNISOLONE
     Indication: Interstitial lung disease
     Dosage: 30 MG, EVERYDAY
     Route: 048
     Dates: start: 20220308, end: 20220322
  14. PREDONINE [Concomitant]
     Active Substance: PREDNISOLONE
     Dosage: 25 MG, EVERYDAY
     Route: 048
     Dates: start: 20220323, end: 20220404
  15. PREDONINE [Concomitant]
     Active Substance: PREDNISOLONE
     Dosage: 20 MG, EVERYDAY
     Route: 048
     Dates: start: 20220405, end: 20220420
  16. LANSOPRAZOLE [Concomitant]
     Active Substance: LANSOPRAZOLE
     Indication: Product used for unknown indication
     Dosage: 15 MG, EVERYDAY
     Route: 048
     Dates: end: 20220420

REACTIONS (9)
  - Interstitial lung disease [Recovering/Resolving]
  - Oral candidiasis [Recovering/Resolving]
  - Renal impairment [Recovering/Resolving]
  - Brain compression [Unknown]
  - Brain oedema [Unknown]
  - Tissue infiltration [Unknown]
  - Central nervous system lesion [Unknown]
  - General physical health deterioration [Unknown]
  - Therapeutic response decreased [Unknown]

NARRATIVE: CASE EVENT DATE: 20220208
